FAERS Safety Report 25940577 (Version 1)
Quarter: 2025Q4

REPORT INFORMATION
  Report Type: Spontaneous
  Country: EU (occurrence: EU)
  Receive Date: 20251020
  Receipt Date: 20251020
  Transmission Date: 20260118
  Serious: Yes (Hospitalization)
  Sender: MYLAN
  Company Number: None

PATIENT
  Age: 17 Year
  Sex: Female

DRUGS (4)
  1. ALPRAZOLAM [Suspect]
     Active Substance: ALPRAZOLAM
     Indication: Product used for unknown indication
     Dosage: 30 DOSAGE FORM,1 TOTAL (0.25 MG X30TABS)
     Dates: start: 20250902, end: 20250902
  2. ALPRAZOLAM [Suspect]
     Active Substance: ALPRAZOLAM
     Dosage: 30 DOSAGE FORM,1 TOTAL (0.25 MG X30TABS)
     Route: 048
     Dates: start: 20250902, end: 20250902
  3. ALPRAZOLAM [Suspect]
     Active Substance: ALPRAZOLAM
     Dosage: 30 DOSAGE FORM,1 TOTAL (0.25 MG X30TABS)
     Route: 048
     Dates: start: 20250902, end: 20250902
  4. ALPRAZOLAM [Suspect]
     Active Substance: ALPRAZOLAM
     Dosage: 30 DOSAGE FORM,1 TOTAL (0.25 MG X30TABS)
     Dates: start: 20250902, end: 20250902

REACTIONS (2)
  - Poisoning deliberate [Recovered/Resolved]
  - Somnolence [Recovered/Resolved]

NARRATIVE: CASE EVENT DATE: 20250902
